FAERS Safety Report 13423267 (Version 2)
Quarter: 2017Q2

REPORT INFORMATION
  Report Type: Report from Study
  Country: GT (occurrence: GT)
  Receive Date: 20170410
  Receipt Date: 20170424
  Transmission Date: 20170830
  Serious: Yes (Other)
  Sender: FDA-Public Use
  Company Number: PHHY2017GT053493

PATIENT
  Sex: Male

DRUGS (1)
  1. CO-DIOVAN [Suspect]
     Active Substance: HYDROCHLOROTHIAZIDE\VALSARTAN
     Indication: HYPERTENSION
     Dosage: (VALSARTAN 320 MG, HYDROCHLOROTHIAZIDE 25 MG)
     Route: 065

REACTIONS (3)
  - Glaucoma [Unknown]
  - Visual acuity reduced [Unknown]
  - Discomfort [Recovering/Resolving]
